FAERS Safety Report 14662447 (Version 1)
Quarter: 2018Q1

REPORT INFORMATION
  Report Type: Spontaneous
  Country: IT (occurrence: IT)
  Receive Date: 20180321
  Receipt Date: 20180321
  Transmission Date: 20180509
  Serious: Yes (Hospitalization, Other)
  Sender: FDA-Public Use
  Company Number: IT-AUROBINDO-AUR-APL-2018-014764

PATIENT
  Age: 40 Day
  Sex: Male
  Weight: 4.5 kg

DRUGS (3)
  1. LAMOTRIGINE. [Suspect]
     Active Substance: LAMOTRIGINE
     Dosage: 120 MILLIGRAM
     Route: 064
  2. LAMOTRIGINE. [Suspect]
     Active Substance: LAMOTRIGINE
     Dosage: 200 MILLIGRAM
     Route: 065
  3. LAMOTRIGINE. [Suspect]
     Active Substance: LAMOTRIGINE
     Indication: PRODUCT USED FOR UNKNOWN INDICATION
     Dosage: 150 MILLIGRAM
     Route: 063

REACTIONS (8)
  - Crying [Recovering/Resolving]
  - Pallor [Recovering/Resolving]
  - Flatulence [Recovering/Resolving]
  - Neutropenia [Recovering/Resolving]
  - Food refusal [Recovering/Resolving]
  - Maternal exposure during breast feeding [Unknown]
  - Foetal exposure during pregnancy [Recovering/Resolving]
  - Normochromic normocytic anaemia [Recovering/Resolving]
